FAERS Safety Report 20153862 (Version 1)
Quarter: 2021Q4

REPORT INFORMATION
  Report Type: Spontaneous
  Country: GB (occurrence: GB)
  Receive Date: 20211207
  Receipt Date: 20211207
  Transmission Date: 20220303
  Serious: Yes (Hospitalization, Other)
  Sender: FDA-Public Use
  Company Number: GB-LUPIN PHARMACEUTICALS INC.-2021-23876

PATIENT
  Age: 36 Year
  Sex: Female

DRUGS (1)
  1. LEVONORGESTREL [Suspect]
     Active Substance: LEVONORGESTREL
     Indication: Intrauterine contraception
     Dosage: UNK (INTRAUTERINE SYSTEM)
     Route: 015

REACTIONS (8)
  - Pregnancy on contraceptive [Unknown]
  - Syncope [Unknown]
  - Abdominal pain [Unknown]
  - Arthralgia [Unknown]
  - Shock [Unknown]
  - Ruptured ectopic pregnancy [Unknown]
  - Abortion of ectopic pregnancy [Unknown]
  - Ectopic pregnancy [Unknown]
